FAERS Safety Report 7843955-5 (Version None)
Quarter: 2011Q4

REPORT INFORMATION
  Report Type: 
  Country: None (occurrence: None)
  Receive Date: 20111025
  Receipt Date: 20110915
  Transmission Date: 20120403
  Serious: Yes (Other)
  Sender: FDA-Public Use
  Company Number: PHHY2011BR86899

PATIENT
  Age: 48 Year
  Sex: Female

DRUGS (3)
  1. NIFEDIPINE [Concomitant]
     Dosage: 40 MG, QD
  2. ENALAPRIL MALEATE [Suspect]
     Dosage: 20 MG, QD
     Route: 048
  3. SIMVASTATIN [Suspect]
     Dosage: 40 MG, QD
     Route: 048

REACTIONS (6)
  - SYSTEMIC LUPUS ERYTHEMATOSUS [None]
  - VENTRICULAR SEPTAL DEFECT [None]
  - LEFT VENTRICULAR HYPERTROPHY [None]
  - TYPE 2 DIABETES MELLITUS [None]
  - BLOOD PRESSURE INCREASED [None]
  - RENAL FAILURE [None]
